FAERS Safety Report 7272464-X (Version None)
Quarter: 2011Q1

REPORT INFORMATION
  Report Type: 
  Country: None (occurrence: None)
  Receive Date: 20110203
  Receipt Date: 20110124
  Transmission Date: 20110831
  Serious: Yes (Death, Hospitalization)
  Sender: FDA-Public Use
  Company Number: JP-ROCHE-722221

PATIENT
  Sex: Male
  Weight: 45 kg

DRUGS (19)
  1. CARBOPLATIN [Concomitant]
     Dosage: DOSAGE IS UNCERTAIN
     Route: 041
     Dates: start: 20100826, end: 20100929
  2. PACLITAXEL [Concomitant]
     Dosage: DOSAGE IS UNCERTAIN
     Route: 041
     Dates: start: 20100826, end: 20100929
  3. DUROTEP [Concomitant]
     Dosage: FORM: TAPE
     Route: 061
     Dates: start: 20100616
  4. AVASTIN [Suspect]
     Route: 041
     Dates: start: 20100716, end: 20100809
  5. AVASTIN [Suspect]
     Dosage: DOSAGE IS UNCERTAIN
     Route: 041
     Dates: start: 20101202, end: 20101201
  6. PACLITAXEL [Concomitant]
     Dosage: DOSAGE UNCERTAIN
     Route: 041
     Dates: start: 20101202, end: 20101201
  7. DUROTEP [Concomitant]
     Route: 061
     Dates: start: 20100616
  8. OPSO [Concomitant]
     Dosage: FORM: ORAL LIQUUID PREPARATION, AT THE PAIN
     Route: 048
     Dates: start: 20100616
  9. PRIMPERAN TAB [Concomitant]
     Dates: start: 20100806, end: 20100809
  10. TARCEVA [Suspect]
     Route: 048
     Dates: start: 20101026
  11. AVASTIN [Suspect]
     Dosage: DOSAGE UNCERTAIN
     Route: 041
     Dates: start: 20100826, end: 20100929
  12. ZYPREXA [Concomitant]
     Route: 048
     Dates: start: 20100801
  13. NAUZELIN [Concomitant]
     Dosage: AT SICKNESS FEELING
     Route: 054
     Dates: start: 20100806, end: 20100809
  14. KETOPROFEN [Concomitant]
     Dosage: FORM: TAPE, PROPER QUANITY ..PROPERLY
     Route: 061
     Dates: start: 20100806, end: 20100809
  15. LOXONIN [Concomitant]
     Route: 048
     Dates: start: 20100616
  16. MYSLEE [Concomitant]
     Dosage: AT SLEEP LOSS
     Route: 048
     Dates: start: 20100616
  17. ADONA [Concomitant]
     Dates: start: 20100806, end: 20100809
  18. CYTOTEC [Concomitant]
     Route: 048
     Dates: start: 20100616
  19. TRANSAMIN [Concomitant]
     Dates: start: 20100806, end: 20100809

REACTIONS (6)
  - DISEASE PROGRESSION [None]
  - MENINGITIS [None]
  - MALAISE [None]
  - RASH [None]
  - DECREASED APPETITE [None]
  - CEREBRAL HAEMORRHAGE [None]
